FAERS Safety Report 6388581-2 (Version None)
Quarter: 2009Q4

REPORT INFORMATION
  Report Type: 
  Country: None (occurrence: None)
  Receive Date: 20091005
  Receipt Date: 20090924
  Transmission Date: 20100525
  Serious: Yes (Death, Hospitalization)
  Sender: FDA-Public Use
  Company Number: JP-JNJFOC-20090907845

PATIENT
  Age: 38 Year
  Sex: Male

DRUGS (3)
  1. REMICADE [Suspect]
     Indication: CROHN'S DISEASE
     Dosage: 1 INFUSION
     Route: 042
  2. AZATHIOPRINE [Suspect]
     Indication: CROHN'S DISEASE
  3. MESALAZINE [Concomitant]
     Indication: CROHN'S DISEASE

REACTIONS (3)
  - FUNGAEMIA [None]
  - MENINGITIS BACTERIAL [None]
  - NEPHROTIC SYNDROME [None]
